FAERS Safety Report 19119932 (Version 1)
Quarter: 2021Q2

REPORT INFORMATION
  Report Type: Other
  Country: US (occurrence: US)
  Receive Date: 20210412
  Receipt Date: 20210412
  Transmission Date: 20210717
  Serious: Yes (Hospitalization, Other)
  Sender: FDA-Public Use
  Company Number: US-INTERCEPT-PM2021001131

PATIENT
  Age: 53 Year
  Sex: Male

DRUGS (1)
  1. OCALIVA [Suspect]
     Active Substance: OBETICHOLIC ACID
     Indication: PRIMARY BILIARY CHOLANGITIS
     Dosage: 5 MILLIGRAM, QW
     Route: 048
     Dates: start: 20200403, end: 202101

REACTIONS (6)
  - Model for end stage liver disease score abnormal [Unknown]
  - Hepatic enzyme abnormal [Recovered/Resolved]
  - Dysstasia [Recovered/Resolved]
  - Ammonia abnormal [Unknown]
  - Hepatic encephalopathy [Recovered/Resolved]
  - Memory impairment [Recovered/Resolved]

NARRATIVE: CASE EVENT DATE: 202101
